FAERS Safety Report 9088891 (Version 1)
Quarter: 2013Q1

REPORT INFORMATION
  Report Type: Spontaneous
  Country: PL (occurrence: PL)
  Receive Date: 20130131
  Receipt Date: 20130131
  Transmission Date: 20140127
  Serious: Yes (Life-Threatening, Hospitalization)
  Sender: FDA-Public Use
  Company Number: PHHY2013PL008793

PATIENT
  Age: 54 Year
  Sex: Female
  Weight: 90 kg

DRUGS (4)
  1. AMOKSIKLAV [Suspect]
     Indication: ACUTE SINUSITIS
     Dosage: 1.2 G, BID
     Route: 042
     Dates: start: 20130126, end: 20130126
  2. DEXAVEN [Concomitant]
     Dosage: 8 MG,
     Route: 042
     Dates: start: 20130126
  3. ORTANOL [Concomitant]
     Dosage: 40 MG, BID
     Route: 048
     Dates: start: 20130126
  4. ZINACEF [Concomitant]
     Dosage: 1500 MG, BID
     Route: 042
     Dates: start: 20130126

REACTIONS (5)
  - Nausea [Recovered/Resolved]
  - Visual impairment [Recovered/Resolved]
  - Loss of consciousness [Recovered/Resolved]
  - Abdominal pain [Recovered/Resolved]
  - Blood pressure decreased [Recovered/Resolved]
